FAERS Safety Report 12339035 (Version 1)
Quarter: 2016Q2

REPORT INFORMATION
  Report Type: Spontaneous
  Country: BR (occurrence: BR)
  Receive Date: 20160505
  Receipt Date: 20160505
  Transmission Date: 20160815
  Serious: Yes (Hospitalization)
  Sender: FDA-Public Use
  Company Number: BR-ASTRAZENECA-2016SE46453

PATIENT
  Age: 63 Year
  Sex: Female

DRUGS (6)
  1. FORXIGA [Suspect]
     Active Substance: DAPAGLIFLOZIN
     Indication: GLUCOSE TOLERANCE IMPAIRED
     Route: 048
     Dates: start: 201602
  2. ANGELIQ [Concomitant]
     Active Substance: DROSPIRENONE\ESTRADIOL
     Indication: HORMONE LEVEL ABNORMAL
     Dosage: DAILY
     Route: 048
     Dates: start: 201601
  3. AMLODIPINE [Concomitant]
     Active Substance: AMLODIPINE BESYLATE
     Indication: HYPERTENSION
     Route: 048
     Dates: start: 201602
  4. ESOMEPRAZOLE [Suspect]
     Active Substance: ESOMEPRAZOLE
     Indication: GASTROOESOPHAGEAL REFLUX DISEASE
     Dosage: 40 MG DAILY (MEDLEY MANUFACTURER)
     Route: 048
     Dates: start: 20160407, end: 20160426
  5. GLIFAGE [Concomitant]
     Active Substance: METFORMIN HYDROCHLORIDE
     Indication: GLUCOSE TOLERANCE IMPAIRED
     Route: 048
     Dates: start: 201602
  6. BENICAR [Concomitant]
     Active Substance: OLMESARTAN MEDOXOMIL
     Indication: HYPERTENSION
     Dosage: DAILY
     Route: 048
     Dates: start: 201602

REACTIONS (4)
  - Diverticulitis [Recovered/Resolved]
  - Abdominal pain [Not Recovered/Not Resolved]
  - Flatulence [Not Recovered/Not Resolved]
  - Gastrooesophageal reflux disease [Recovering/Resolving]

NARRATIVE: CASE EVENT DATE: 2016
